FAERS Safety Report 8821156 (Version 1)
Quarter: 2012Q4

REPORT INFORMATION
  Report Type: 
  Country: US (occurrence: US)
  Receive Date: 20121002
  Receipt Date: 20121002
  Transmission Date: 20130627
  Serious: No
  Sender: FDA-Public Use
  Company Number: US-BRISTOL-MYERS SQUIBB COMPANY-16687022

PATIENT
  Age: 59 Year
  Sex: Female
  Weight: 54 kg

DRUGS (1)
  1. BUSPIRONE HCL [Suspect]
     Indication: ANXIETY
     Dosage: yrs ago,on and off with the longest period 6months-1year at a time,from 2004,2009 generic,Jul2009
     Dates: start: 2004

REACTIONS (3)
  - Nausea [Unknown]
  - Vision blurred [Unknown]
  - Drug ineffective [Unknown]
